FAERS Safety Report 14034892 (Version 1)
Quarter: 2017Q4

REPORT INFORMATION
  Report Type: Spontaneous
  Country: CA (occurrence: CA)
  Receive Date: 20171003
  Receipt Date: 20171003
  Transmission Date: 20180321
  Serious: Yes (Hospitalization, Other)
  Sender: FDA-Public Use
  Company Number: CA-GLAXOSMITHKLINE-CA2017GSK151169

PATIENT
  Sex: Female

DRUGS (4)
  1. BENLYSTA [Suspect]
     Active Substance: BELIMUMAB
     Indication: SYSTEMIC LUPUS ERYTHEMATOSUS
     Dosage: 660 MG, UNK
  2. BENLYSTA [Suspect]
     Active Substance: BELIMUMAB
     Dosage: UNK
  3. PREDNISONE. [Concomitant]
     Active Substance: PREDNISONE
     Indication: PRODUCT USED FOR UNKNOWN INDICATION
     Dosage: 1 DF, 1D
     Route: 048
  4. BENLYSTA [Suspect]
     Active Substance: BELIMUMAB
     Dosage: UNK

REACTIONS (2)
  - Pain [Recovering/Resolving]
  - Nephritis [Recovering/Resolving]
